FAERS Safety Report 12890809 (Version 3)
Quarter: 2017Q1

REPORT INFORMATION
  Report Type: Spontaneous
  Country: US (occurrence: US)
  Receive Date: 20161027
  Receipt Date: 20170202
  Transmission Date: 20170428
  Serious: No
  Sender: FDA-Public Use
  Company Number: US-CELGENEUS-USA-2016105892

PATIENT
  Age: 58 Year
  Sex: Female

DRUGS (1)
  1. OTEZLA [Suspect]
     Active Substance: APREMILAST
     Indication: PSORIASIS
     Dosage: 30MG
     Route: 048

REACTIONS (2)
  - Psoriasis [Unknown]
  - Rash [Unknown]

NARRATIVE: CASE EVENT DATE: 20161020
